FAERS Safety Report 11598200 (Version 1)
Quarter: 2015Q4

REPORT INFORMATION
  Report Type: Spontaneous
  Country: US (occurrence: US)
  Receive Date: 20151006
  Receipt Date: 20151006
  Transmission Date: 20160304
  Serious: No
  Sender: FDA-Public Use
  Company Number: US-ROCHE-1462341

PATIENT
  Sex: Male

DRUGS (1)
  1. ERIVEDGE [Suspect]
     Active Substance: VISMODEGIB
     Indication: METASTASES TO LYMPH NODES
     Route: 048
     Dates: start: 20140724

REACTIONS (14)
  - Abdominal pain upper [Unknown]
  - Malaise [Unknown]
  - Appetite disorder [Unknown]
  - Fatigue [Unknown]
  - Asthenia [Unknown]
  - Alopecia [Unknown]
  - Malignant neoplasm progression [Unknown]
  - Enteritis infectious [Unknown]
  - Dysgeusia [Unknown]
  - Rash [Unknown]
  - Feeling cold [Unknown]
  - Cholelithiasis [Unknown]
  - Nausea [Unknown]
  - Hyperhidrosis [Unknown]
